FAERS Safety Report 20037906 (Version 1)
Quarter: 2021Q4

REPORT INFORMATION
  Report Type: Spontaneous
  Country: US (occurrence: US)
  Receive Date: 20211105
  Receipt Date: 20211105
  Transmission Date: 20220303
  Serious: Yes (Other)
  Sender: FDA-Public Use
  Company Number: US-CELLTRION-2021-US-023347

PATIENT
  Age: 58 Year
  Sex: Female

DRUGS (1)
  1. PREGABALIN [Suspect]
     Active Substance: PREGABALIN
     Indication: Overdose

REACTIONS (2)
  - Electrocardiogram T wave inversion [Unknown]
  - Bundle branch block left [Recovered/Resolved]
